FAERS Safety Report 22789329 (Version 3)
Quarter: 2023Q4

REPORT INFORMATION
  Report Type: Spontaneous
  Country: US (occurrence: US)
  Receive Date: 20230804
  Receipt Date: 20231102
  Transmission Date: 20240110
  Serious: No
  Sender: FDA-Public Use
  Company Number: US-BRISTOL-MYERS SQUIBB COMPANY-2023-109778

PATIENT
  Age: 76 Year
  Sex: Female

DRUGS (1)
  1. ORENCIA [Suspect]
     Active Substance: ABATACEPT
     Indication: Product used for unknown indication
     Route: 058

REACTIONS (12)
  - Headache [Unknown]
  - Gait disturbance [Unknown]
  - Muscle spasms [Unknown]
  - Pain in extremity [Unknown]
  - Nervousness [Unknown]
  - Impatience [Unknown]
  - Balance disorder [Unknown]
  - Dizziness [Unknown]
  - Fatigue [Unknown]
  - Somnolence [Unknown]
  - Confusional state [Unknown]
  - Thinking abnormal [Unknown]

NARRATIVE: CASE EVENT DATE: 20230803
